FAERS Safety Report 12892691 (Version 1)
Quarter: 2016Q4

REPORT INFORMATION
  Report Type: Spontaneous
  Country: US (occurrence: US)
  Receive Date: 20161027
  Receipt Date: 20161027
  Transmission Date: 20170207
  Serious: Yes (Hospitalization)
  Sender: FDA-Public Use
  Company Number: None

PATIENT
  Age: 35 Year
  Sex: Female
  Weight: 77.3 kg

DRUGS (1)
  1. MEMANTINE HYDROCHLORIDE. [Suspect]
     Active Substance: MEMANTINE HYDROCHLORIDE
     Dates: end: 20161025

REACTIONS (7)
  - Vomiting [None]
  - Blood bilirubin increased [None]
  - Transaminases increased [None]
  - Biliary dilatation [None]
  - Chromaturia [None]
  - Metastasis [None]
  - Bile duct obstruction [None]

NARRATIVE: CASE EVENT DATE: 20161006
